FAERS Safety Report 6213882-8 (Version None)
Quarter: 2009Q2

REPORT INFORMATION
  Report Type: 
  Country: None (occurrence: None)
  Receive Date: 20090602
  Receipt Date: 20090602
  Transmission Date: 20091009
  Serious: Yes (Hospitalization)
  Sender: FDA-Public Use
  Company Number: None

PATIENT
  Age: 58 Year
  Sex: Male
  Weight: 88 kg

DRUGS (1)
  1. FLECTOR [Suspect]
     Indication: OSTEOARTHRITIS
     Dosage: ONE PATCH TWICE DAILY TRANSDERMAL
     Route: 062
     Dates: start: 20070415, end: 20090509

REACTIONS (3)
  - EPISTAXIS [None]
  - GASTROINTESTINAL HAEMORRHAGE [None]
  - SNEEZING [None]
